FAERS Safety Report 15607305 (Version 2)
Quarter: 2018Q4

REPORT INFORMATION
  Report Type: Spontaneous
  Country: ES (occurrence: ES)
  Receive Date: 20181112
  Receipt Date: 20181122
  Transmission Date: 20190205
  Serious: Yes (Hospitalization, Other)
  Sender: FDA-Public Use
  Company Number: ES-009507513-1811ESP001931

PATIENT
  Age: 67 Year
  Sex: Male

DRUGS (2)
  1. BCG LIVE [Suspect]
     Active Substance: BACILLUS CALMETTE-GUERIN SUBSTRAIN TICE LIVE ANTIGEN
     Indication: BLADDER CANCER
     Dosage: 3 CYCLES, 150 MG LYOPHILIZED PASTEUR STRAIN, FOLLOWED BY ONE MITOMYCIN INSTILLATION
     Route: 043
  2. MITOMYCIN. [Concomitant]
     Active Substance: MITOMYCIN
     Indication: BLADDER CANCER
     Dosage: FOLLOWING THE BCG INSTILLATION
     Route: 043

REACTIONS (1)
  - Uveitis [Recovered/Resolved]
